FAERS Safety Report 8500521-6 (Version None)
Quarter: 2012Q3

REPORT INFORMATION
  Report Type: 
  Country: None (occurrence: None)
  Receive Date: 20120705
  Receipt Date: 20120705
  Transmission Date: 20120928
  Serious: Yes (Hospitalization)
  Sender: FDA-Public Use
  Company Number: None

PATIENT
  Age: 65 Year
  Sex: Male
  Weight: 70.5 kg

DRUGS (1)
  1. AMOXICILLIN [Suspect]
     Indication: SINUSITIS
     Dosage: MG PO
     Route: 048
     Dates: start: 20120419, end: 20120422

REACTIONS (8)
  - VOMITING [None]
  - NAUSEA [None]
  - NIGHT SWEATS [None]
  - DIARRHOEA [None]
  - HEADACHE [None]
  - NEURALGIA [None]
  - CHILLS [None]
  - PYREXIA [None]
